FAERS Safety Report 23528281 (Version 5)
Quarter: 2024Q2

REPORT INFORMATION
  Report Type: Spontaneous
  Country: US (occurrence: US)
  Receive Date: 20240215
  Receipt Date: 20240502
  Transmission Date: 20240716
  Serious: No
  Sender: FDA-Public Use
  Company Number: US-PFIZER INC-202400039787

PATIENT
  Age: 64 Year
  Sex: Male
  Weight: 74.84 kg

DRUGS (3)
  1. TESTOSTERONE CYPIONATE [Suspect]
     Active Substance: TESTOSTERONE CYPIONATE
     Indication: Asthenia
     Dosage: WEEKLY, SMALL AMOUNT OF TESTOSTERONE
  2. TESTOSTERONE CYPIONATE [Suspect]
     Active Substance: TESTOSTERONE CYPIONATE
     Indication: Blood testosterone decreased
     Dosage: INJECT ONE FOURTH MILLILITER INTRAVENOUSLY ONCE A WEEK
     Route: 042
  3. TESTOSTERONE CYPIONATE [Suspect]
     Active Substance: TESTOSTERONE CYPIONATE
     Dosage: 1/4 ML EACH INJECTION FOR 4 WKS/WEEKLY DOSE WITH UNITS: 1/4 ML

REACTIONS (4)
  - Product dispensing error [Unknown]
  - Incorrect route of product administration [Unknown]
  - Incorrect dose administered [Unknown]
  - Body height decreased [Unknown]
